FAERS Safety Report 7972043-2 (Version None)
Quarter: 2011Q4

REPORT INFORMATION
  Report Type: 
  Country: None (occurrence: None)
  Receive Date: 20111212
  Receipt Date: 20111130
  Transmission Date: 20120403
  Serious: Yes (Hospitalization)
  Sender: FDA-Public Use
  Company Number: US-ELI_LILLY_AND_COMPANY-US201111004990

PATIENT
  Sex: Female

DRUGS (7)
  1. FORTEO [Suspect]
     Indication: OSTEOPOROSIS
     Dosage: 20 UG, QD
     Route: 065
     Dates: start: 20111105
  2. LISINOPRIL [Concomitant]
  3. LASIX [Concomitant]
  4. ACTONEL [Concomitant]
  5. LOVASTATIN [Concomitant]
  6. VERAPAMIL [Concomitant]
     Indication: ANGIOPATHY
  7. OXYCODONE HCL AND ACETAMINOPHEN [Concomitant]
     Indication: PAIN

REACTIONS (5)
  - PYREXIA [None]
  - VOMITING [None]
  - NEPHROLITHIASIS [None]
  - NAUSEA [None]
  - DYSURIA [None]
